FAERS Safety Report 15814409 (Version 2)
Quarter: 2019Q1

REPORT INFORMATION
  Report Type: Report from Study
  Country: CA (occurrence: CA)
  Receive Date: 20190111
  Receipt Date: 20190222
  Transmission Date: 20190417
  Serious: Yes (Death)
  Sender: FDA-Public Use
  Company Number: CA-HLSUS-2019-CA-000033

PATIENT
  Age: 65 Year
  Sex: Male

DRUGS (1)
  1. CLOZARIL [Suspect]
     Active Substance: CLOZAPINE
     Indication: HALLUCINATION, VISUAL
     Dosage: 25 MG AT BEDTIME
     Route: 048
     Dates: start: 20151112, end: 201812

REACTIONS (2)
  - Pneumonia [Fatal]
  - Thrombocytosis [Unknown]

NARRATIVE: CASE EVENT DATE: 2016
